FAERS Safety Report 8665602 (Version 3)
Quarter: 2012Q4

REPORT INFORMATION
  Report Type: 
  Country: JP (occurrence: JP)
  Receive Date: 20120716
  Receipt Date: 20121112
  Transmission Date: 20130627
  Serious: Yes (Death)
  Sender: FDA-Public Use
  Company Number: JP-ASTELLAS-2012JP006372

PATIENT
  Sex: Male
  Weight: 61 kg

DRUGS (13)
  1. PROGRAF [Suspect]
     Indication: IMMUNOSUPPRESSANT DRUG THERAPY
     Dosage: 4.5 mg, bid
     Route: 048
     Dates: start: 200606, end: 201103
  2. PROGRAF [Suspect]
     Dosage: 4 mg, Unknown/D
     Route: 048
     Dates: start: 201103
  3. CELLCEPT                           /01275102/ [Suspect]
     Indication: IMMUNOSUPPRESSANT DRUG THERAPY
     Dosage: 875 mg, bid
     Route: 048
     Dates: start: 200606, end: 20110325
  4. PREDONINE                          /00016201/ [Concomitant]
     Indication: IMMUNOSUPPRESSANT DRUG THERAPY
     Dosage: 5 mg, bid
     Route: 048
     Dates: start: 200606
  5. ZYLORIC [Concomitant]
     Indication: HYPERURICAEMIA
     Dosage: 100 mg, UID/QD
     Route: 048
     Dates: start: 200606
  6. TAKEPRON [Concomitant]
     Indication: PROPHYLAXIS AGAINST GASTROINTESTINAL ULCER
     Dosage: 15 mg, UID/QD
     Route: 048
     Dates: start: 200606
  7. TENORMIN [Concomitant]
     Indication: HYPERTENSION
     Dosage: 25 mg, UID/QD
     Route: 048
     Dates: start: 200606
  8. BAYASPIRIN [Concomitant]
     Indication: ISCHAEMIC HEART DISEASE PROPHYLAXIS
     Dosage: 100 mg, UID/QD
     Route: 048
     Dates: start: 200606
  9. BAKTAR [Concomitant]
     Indication: PROPHYLAXIS
     Dosage: UNK
     Route: 048
     Dates: start: 200606
  10. BLOPRESS [Concomitant]
     Indication: HYPERTENSION
     Dosage: 4 mg, UID/QD
     Route: 048
     Dates: start: 200606
  11. HERBESSER R [Concomitant]
     Indication: HYPERTENSION
     Dosage: 100 mg, UID/QD
     Route: 048
     Dates: start: 200606
  12. LIPITOR [Concomitant]
     Indication: HYPERLIPIDAEMIA
     Dosage: 5 mg, UID/QD
     Route: 048
     Dates: start: 200606
  13. RENIVACE [Concomitant]
     Indication: HYPERTENSION
     Dosage: 2.5 mg, UID/QD
     Route: 048
     Dates: start: 200606

REACTIONS (1)
  - Adenocarcinoma pancreas [Fatal]
